FAERS Safety Report 5632281-0 (Version None)
Quarter: 2008Q1

REPORT INFORMATION
  Report Type: 
  Country: None (occurrence: None)
  Receive Date: 20080220
  Receipt Date: 20080212
  Transmission Date: 20080703
  Serious: Yes (Hospitalization, Disabling, Other)
  Sender: FDA-Public Use
  Company Number: PHEH2002US06620

PATIENT
  Age: 51 Year
  Sex: Female
  Weight: 56.689 kg

DRUGS (7)
  1. FEMARA [Concomitant]
  2. VOLTAREN [Concomitant]
  3. DYAZIDE [Concomitant]
  4. AREDIA [Suspect]
     Indication: METASTASES TO BONE
     Dosage: 90 MG, QMO
     Route: 042
     Dates: start: 19981010, end: 20020403
  5. FEMARA [Concomitant]
  6. ARIMIDEX [Concomitant]
     Dates: start: 19980101, end: 20011001
  7. ZOLOFT [Concomitant]

REACTIONS (16)
  - ABDOMINAL ADHESIONS [None]
  - ANAEMIA [None]
  - BLOOD ALBUMIN DECREASED [None]
  - BLOOD CALCIUM DECREASED [None]
  - BLOOD CREATININE ABNORMAL [None]
  - BLOOD UREA INCREASED [None]
  - BREAST CANCER RECURRENT [None]
  - FOCAL GLOMERULOSCLEROSIS [None]
  - HAEMODIALYSIS [None]
  - HEADACHE [None]
  - LAPAROSCOPY [None]
  - PERITONEAL DIALYSIS [None]
  - PROTEIN TOTAL DECREASED [None]
  - PROTEINURIA [None]
  - RENAL FAILURE CHRONIC [None]
  - RENAL GLYCOSURIA [None]
